FAERS Safety Report 8226494-1 (Version None)
Quarter: 2012Q1

REPORT INFORMATION
  Report Type: 
  Country: None (occurrence: None)
  Receive Date: 20120322
  Receipt Date: 20120312
  Transmission Date: 20120608
  Serious: Yes (Other)
  Sender: FDA-Public Use
  Company Number: US-ASTRAZENECA-2012SE17085

PATIENT
  Age: 61 Year
  Sex: Female

DRUGS (1)
  1. NEXIUM [Suspect]
     Route: 048

REACTIONS (7)
  - DIARRHOEA [None]
  - DRUG DOSE OMISSION [None]
  - THROAT IRRITATION [None]
  - BURNING SENSATION [None]
  - DYSPEPSIA [None]
  - THROMBOSIS [None]
  - TONGUE COATED [None]
